FAERS Safety Report 18122636 (Version 1)
Quarter: 2020Q3

REPORT INFORMATION
  Report Type: Spontaneous
  Country: US (occurrence: US)
  Receive Date: 20200807
  Receipt Date: 20200807
  Transmission Date: 20201103
  Serious: Yes (Hospitalization)
  Sender: FDA-Public Use
  Company Number: US-GYP-000177

PATIENT
  Age: 53 Year

DRUGS (2)
  1. PREDNISONE. [Suspect]
     Active Substance: PREDNISONE
     Indication: AUTOIMMUNE PANCREATITIS
     Route: 065
  2. PREDNISONE. [Suspect]
     Active Substance: PREDNISONE
     Indication: AUTOIMMUNE PANCREATITIS
     Dosage: GIVEN AT TAPERED DOSE; DOSE TAPERING OF 5 MG/DAY PER WEEK
     Route: 065

REACTIONS (2)
  - COVID-19 pneumonia [Recovered/Resolved]
  - Drug effective for unapproved indication [Unknown]
